FAERS Safety Report 21683866 (Version 2)
Quarter: 2022Q4

REPORT INFORMATION
  Report Type: Other
  Country: US (occurrence: None)
  Receive Date: 20221205
  Receipt Date: 20221227
  Transmission Date: 20230112
  Serious: Yes (Other)
  Sender: FDA-Public Use
  Company Number: US-ROCHE-3230993

PATIENT
  Age: 54 Year
  Sex: Male
  Weight: 93.8 kg

DRUGS (1)
  1. AVASTIN [Suspect]
     Active Substance: BEVACIZUMAB
     Indication: Glioblastoma
     Dosage: 900MG IVPB EVERY 14 DAYS
     Route: 042
     Dates: start: 20220927

REACTIONS (6)
  - Brain neoplasm [Unknown]
  - Cerebral haemorrhage [Unknown]
  - Thrombosis [Unknown]
  - Facial paralysis [Recovering/Resolving]
  - Cough [Unknown]
  - Asthenia [Recovering/Resolving]

NARRATIVE: CASE EVENT DATE: 20221001
